FAERS Safety Report 14556621 (Version 3)
Quarter: 2019Q2

REPORT INFORMATION
  Report Type: Spontaneous
  Country: US (occurrence: US)
  Receive Date: 20180221
  Receipt Date: 20190416
  Transmission Date: 20190711
  Serious: No
  Sender: FDA-Public Use
  Company Number: US-PFIZER INC-2018070971

PATIENT
  Age: 44 Year
  Sex: Female
  Weight: 57 kg

DRUGS (1)
  1. IBRANCE [Suspect]
     Active Substance: PALBOCICLIB
     Indication: BREAST CANCER FEMALE
     Dosage: 125 MG, CYCLIC (DAYS 1 -21 Q 28 DAYS)
     Route: 048
     Dates: start: 201702, end: 201809

REACTIONS (2)
  - Colitis [Unknown]
  - Pain [Unknown]

NARRATIVE: CASE EVENT DATE: 2018
